FAERS Safety Report 16810590 (Version 1)
Quarter: 2019Q4

REPORT INFORMATION
  Report Type: Spontaneous
  Country: US (occurrence: US)
  Receive Date: 20190916
  Receipt Date: 20190916
  Transmission Date: 20200122
  Serious: Yes (Hospitalization)
  Sender: FDA-Public Use
  Company Number: None

PATIENT
  Age: 67 Year
  Sex: Female

DRUGS (18)
  1. CELEBREX [Concomitant]
     Active Substance: CELECOXIB
     Dates: start: 20180607
  2. VITAMIN C [Concomitant]
     Active Substance: ASCORBIC ACID
     Dates: start: 20180607
  3. RITALIN [Concomitant]
     Active Substance: METHYLPHENIDATE HYDROCHLORIDE
     Dates: start: 20180607
  4. MONTELUKAST [Concomitant]
     Active Substance: MONTELUKAST SODIUM
     Dates: start: 20180607
  5. WELCHOL [Concomitant]
     Active Substance: COLESEVELAM HYDROCHLORIDE
     Dates: start: 20180607
  6. ASPIRIN. [Concomitant]
     Active Substance: ASPIRIN
     Dates: start: 20180607
  7. METFORMIN [Concomitant]
     Active Substance: METFORMIN HYDROCHLORIDE
     Dates: start: 20180607
  8. PREVACID [Concomitant]
     Active Substance: LANSOPRAZOLE
  9. PROBIOTIC [Concomitant]
     Active Substance: PROBIOTICS NOS
     Dates: start: 20180607
  10. VITAMIN D3 [Concomitant]
     Active Substance: CHOLECALCIFEROL
     Dates: start: 20180607
  11. FLAXSEED [Concomitant]
     Active Substance: FLAX SEED
     Dates: start: 20180607
  12. MULTI VITAMIN [Concomitant]
     Active Substance: VITAMINS
     Dates: start: 20180607
  13. PREVALITE [Concomitant]
     Active Substance: CHOLESTYRAMINE
     Dates: start: 20180607
  14. REBIF [Suspect]
     Active Substance: INTERFERON BETA-1A
     Indication: MULTIPLE SCLEROSIS
     Dosage: ?          OTHER FREQUENCY:3 TIMES PER WEEK;?
     Route: 058
     Dates: start: 20180306
  15. ZOLPIDEM [Concomitant]
     Active Substance: ZOLPIDEM TARTRATE
     Dates: start: 20190320
  16. FISH OIL [Concomitant]
     Active Substance: FISH OIL
     Dates: start: 20180607
  17. SULFAMETHOX [Concomitant]
     Dates: start: 20190320
  18. TRIAMT/HCTZ [Concomitant]
     Active Substance: HYDROCHLOROTHIAZIDE\TRIAMTERENE
     Dates: start: 20180607

REACTIONS (2)
  - Hysterectomy [None]
  - Mental status changes [None]

NARRATIVE: CASE EVENT DATE: 20190601
